FAERS Safety Report 19168146 (Version 1)
Quarter: 2021Q2

REPORT INFORMATION
  Report Type: Spontaneous
  Country: US (occurrence: US)
  Receive Date: 20210422
  Receipt Date: 20210422
  Transmission Date: 20210717
  Serious: No
  Sender: FDA-Public Use
  Company Number: US-BAUSCH-BL-2021-012125

PATIENT
  Sex: Female

DRUGS (5)
  1. LACRISERT [Suspect]
     Active Substance: HYDROXYPROPYL CELLULOSE
     Dosage: RE?STARTED IN LAST QUARTER OF 2020
     Route: 065
     Dates: start: 2020, end: 20210302
  2. PREDNISOLONE. [Concomitant]
     Active Substance: PREDNISOLONE
     Indication: PRODUCT USED FOR UNKNOWN INDICATION
  3. REFRESH PLUS [Concomitant]
     Active Substance: CARBOXYMETHYLCELLULOSE SODIUM
     Indication: PRODUCT USED FOR UNKNOWN INDICATION
  4. REFRESH OPTIVE ADVANCED [Concomitant]
     Active Substance: CARBOXYMETHYLCELLULOSE SODIUM\GLYCERIN\POLYSORBATE 80
     Indication: PRODUCT USED FOR UNKNOWN INDICATION
  5. LACRISERT [Suspect]
     Active Substance: HYDROXYPROPYL CELLULOSE
     Indication: PRODUCT USED FOR UNKNOWN INDICATION
     Dosage: STARTED FOR OVER 15 YEARS
     Route: 065
     Dates: end: 2020

REACTIONS (6)
  - Vision blurred [Unknown]
  - Product availability issue [Unknown]
  - Product quality issue [Unknown]
  - Product physical consistency issue [Unknown]
  - Visual impairment [Unknown]
  - Eye inflammation [Unknown]

NARRATIVE: CASE EVENT DATE: 2020
